FAERS Safety Report 4564771-6 (Version None)
Quarter: 2005Q1

REPORT INFORMATION
  Report Type: 
  Country: None (occurrence: None)
  Receive Date: 20050128
  Receipt Date: 20040323
  Transmission Date: 20050727
  Serious: Yes (Hospitalization)
  Sender: FDA-Public Use
  Company Number: JP-ABBOTT-04P-087-0254739-00

PATIENT
  Sex: Female

DRUGS (66)
  1. NORVIR [Suspect]
     Indication: HIV INFECTION
     Route: 048
     Dates: start: 20000310, end: 20001027
  2. KALETRA [Suspect]
     Indication: HIV INFECTION
     Route: 048
     Dates: start: 20010130
  3. CLARITHROMYCIN [Suspect]
     Indication: MYCOBACTERIUM AVIUM COMPLEX INFECTION
     Route: 048
     Dates: start: 20001028
  4. CLARITHROMYCIN [Suspect]
     Route: 048
     Dates: start: 19981028, end: 19981201
  5. ABACAVIR SULFATE [Suspect]
     Indication: HIV INFECTION
     Route: 048
     Dates: start: 20010130
  6. INDINAVIR [Suspect]
     Indication: HIV INFECTION
     Route: 048
     Dates: start: 20000310, end: 20001027
  7. INDINAVIR [Suspect]
     Route: 048
     Dates: start: 20000310, end: 20001027
  8. NELFINAVIR [Suspect]
     Indication: HIV INFECTION
     Route: 048
     Dates: start: 19980910, end: 19981118
  9. NELFINAVIR [Suspect]
     Route: 048
     Dates: start: 19990223, end: 19991216
  10. EFAVIRENZ [Suspect]
     Indication: HIV INFECTION
     Route: 048
     Dates: start: 20000310
  11. EFAVIRENZ [Suspect]
     Dates: start: 20010130
  12. GANCICLOVIR [Suspect]
     Indication: DRUG USE FOR UNKNOWN INDICATION
     Route: 050
     Dates: start: 20000215, end: 20000306
  13. GANCICLOVIR [Suspect]
     Route: 050
     Dates: start: 20000307, end: 20000424
  14. GANCICLOVIR [Suspect]
     Route: 050
     Dates: start: 20000425, end: 20000426
  15. BACTRIM [Suspect]
     Indication: PROPHYLAXIS
     Route: 048
     Dates: start: 20010113, end: 20020319
  16. ETHAMBUTOL HCL [Suspect]
     Indication: MYCOBACTERIUM AVIUM COMPLEX INFECTION
     Dates: start: 20001028, end: 20011130
  17. ETHAMBUTOL HCL [Suspect]
     Dates: start: 20001028, end: 20011130
  18. ZIDOVUDINE [Concomitant]
     Indication: HIV INFECTION
     Route: 048
     Dates: start: 19980831, end: 19980909
  19. ZIDOVUDINE [Concomitant]
     Dates: start: 19991119, end: 19991216
  20. ZIDOVUDINE [Concomitant]
     Dates: start: 20000831, end: 20000909
  21. LAMIVUDINE [Concomitant]
     Indication: HIV INFECTION
     Route: 048
     Dates: start: 19980831, end: 19981118
  22. LAMIVUDINE [Concomitant]
     Dates: start: 19990223, end: 19991216
  23. LAMIVUDINE [Concomitant]
     Dates: start: 20000831, end: 20001118
  24. STAVUDINE [Concomitant]
     Indication: HIV INFECTION
     Route: 048
     Dates: start: 19980910, end: 19981118
  25. STAVUDINE [Concomitant]
     Dates: start: 19990223, end: 19991118
  26. FOSCARNET SODIUM [Concomitant]
     Indication: DRUG USE FOR UNKNOWN INDICATION
     Route: 050
     Dates: start: 20000125, end: 20000303
  27. FOSCARNET SODIUM [Concomitant]
     Dates: start: 20000404, end: 20000426
  28. RIFABUTIN [Concomitant]
     Indication: MYCOBACTERIUM AVIUM COMPLEX INFECTION
     Route: 048
     Dates: start: 19980923, end: 19981021
  29. RIFABUTIN [Concomitant]
     Dates: start: 20001028, end: 20010213
  30. AMIKACIN SULFATE [Concomitant]
     Indication: DRUG USE FOR UNKNOWN INDICATION
     Route: 050
     Dates: start: 19980922, end: 19981009
  31. AMIKACIN SULFATE [Concomitant]
     Route: 050
     Dates: start: 19981114, end: 19981117
  32. AMIKACIN SULFATE [Concomitant]
     Route: 050
     Dates: start: 19981118, end: 19981217
  33. AMIKACIN SULFATE [Concomitant]
     Route: 050
     Dates: start: 19981214, end: 19990408
  34. AMIKACIN SULFATE [Concomitant]
     Route: 050
     Dates: start: 20001028, end: 20001108
  35. AZITHROMYCIN HYDRATE [Concomitant]
     Indication: DRUG USE FOR UNKNOWN INDICATION
     Dates: start: 19981210, end: 19990715
  36. SPARFLOXACIN [Concomitant]
     Indication: DRUG USE FOR UNKNOWN INDICATION
     Dates: start: 19981216, end: 19991115
  37. ROXITHROMYCIN [Concomitant]
     Indication: DRUG USE FOR UNKNOWN INDICATION
     Dates: start: 19990705, end: 19991115
  38. ROXITHROMYCIN [Concomitant]
     Dates: start: 20000131, end: 20001027
  39. PENTAMIDINE ISETHIONATE [Concomitant]
     Indication: INFECTION PROPHYLAXIS
     Route: 050
     Dates: start: 19980918, end: 19990331
  40. PENTAMIDINE ISETHIONATE [Concomitant]
     Dates: start: 19990430, end: 20000104
  41. SODIUM CHLORIDE [Concomitant]
     Indication: DRUG USE FOR UNKNOWN INDICATION
     Dates: start: 19980918, end: 19990331
  42. SODIUM CHLORIDE [Concomitant]
     Dates: start: 20000125, end: 20000214
  43. SODIUM CHLORIDE [Concomitant]
     Dates: start: 20000215, end: 20000303
  44. SODIUM CHLORIDE [Concomitant]
     Dates: start: 20000404, end: 20000426
  45. PREDNISOLONE [Concomitant]
     Indication: DRUG USE FOR UNKNOWN INDICATION
     Dates: start: 19980928, end: 20000321
  46. HYDROCORTISONE SODIUM PHOSPHATE [Concomitant]
     Indication: DRUG USE FOR UNKNOWN INDICATION
     Dates: start: 19980502, end: 19980530
  47. HYDROCORTISONE SODIUM PHOSPHATE [Concomitant]
     Dates: start: 20000322, end: 20000406
  48. HYDROCORTISONE SODIUM PHOSPHATE [Concomitant]
     Dates: start: 20000407
  49. MORPHINE SULFATE [Concomitant]
     Indication: DRUG USE FOR UNKNOWN INDICATION
     Dates: start: 19991108, end: 19991129
  50. MORPHINE SULFATE [Concomitant]
     Dates: start: 19991130, end: 19991205
  51. MORPHINE SULFATE [Concomitant]
     Dates: start: 19991206, end: 20000101
  52. ATOVAQUONE [Concomitant]
     Indication: DRUG USE FOR UNKNOWN INDICATION
     Dates: start: 20000105, end: 20000125
  53. ATOVAQUONE [Concomitant]
     Dates: start: 20000126, end: 20000126
  54. ATOVAQUONE [Concomitant]
     Dates: start: 20001214, end: 20001222
  55. HYDROCORTISONE [Concomitant]
     Indication: DRUG USE FOR UNKNOWN INDICATION
     Dates: start: 20000407, end: 20001027
  56. HYDROCORTISONE [Concomitant]
     Dates: start: 20001029, end: 20011002
  57. HYDROCORTISONE [Concomitant]
     Dates: start: 20021003
  58. IV FLUID [Concomitant]
     Indication: DRUG USE FOR UNKNOWN INDICATION
     Route: 042
     Dates: start: 20000125, end: 20000303
  59. IV FLUID [Concomitant]
     Dates: start: 20010202, end: 20010207
  60. HYDROXYZINE EMBONATE [Concomitant]
     Indication: DRUG USE FOR UNKNOWN INDICATION
     Dates: start: 20000102, end: 20000501
  61. HYDROXYZINE EMBONATE [Concomitant]
     Dates: start: 19991130, end: 19991224
  62. MORPHINE HYDROCHLORIDE [Concomitant]
     Indication: DRUG USE FOR UNKNOWN INDICATION
     Dates: start: 20000102, end: 20000501
  63. MORPHINE HYDROCHLORIDE [Concomitant]
     Dates: start: 20000113
  64. GLUCOSE [Concomitant]
     Indication: DRUG USE FOR UNKNOWN INDICATION
     Dates: start: 20000102, end: 20000501
  65. CIPROFLOXACIN HCL [Concomitant]
     Indication: DRUG USE FOR UNKNOWN INDICATION
     Dates: start: 20001119, end: 20020220
  66. DEXTROSE [Concomitant]
     Indication: DRUG USE FOR UNKNOWN INDICATION
     Dates: start: 20000102, end: 20000301

REACTIONS (11)
  - BLOOD ALKALINE PHOSPHATASE INCREASED [None]
  - BLOOD ELECTROLYTES ABNORMAL [None]
  - CALCULUS URINARY [None]
  - CREATININE RENAL CLEARANCE DECREASED [None]
  - DIZZINESS [None]
  - GAMMA-GLUTAMYLTRANSFERASE INCREASED [None]
  - HIV WASTING SYNDROME [None]
  - HYPERLIPIDAEMIA [None]
  - NAUSEA [None]
  - PNEUMOCYSTIS JIROVECI PNEUMONIA [None]
  - VOMITING [None]
